FAERS Safety Report 9038466 (Version 1)
Quarter: 2013Q1

REPORT INFORMATION
  Report Type: Spontaneous
  Country: US (occurrence: US)
  Receive Date: 20130129
  Receipt Date: 20130129
  Transmission Date: 20140127
  Serious: Yes (Other)
  Sender: FDA-Public Use
  Company Number: US-SHIRE-ALL1-2013-00361

PATIENT
  Age: 15 Year
  Sex: Female
  Weight: 58.96 kg

DRUGS (1)
  1. VYVANSE [Suspect]
     Indication: ATTENTION DEFICIT/HYPERACTIVITY DISORDER
     Dosage: 40 MG, 1X/DAY:QD
     Route: 048
     Dates: start: 201206, end: 20130119

REACTIONS (2)
  - Hallucination, auditory [Not Recovered/Not Resolved]
  - Paranoia [Not Recovered/Not Resolved]
